FAERS Safety Report 10488622 (Version 1)
Quarter: 2014Q3

REPORT INFORMATION
  Report Type: Spontaneous
  Country: US (occurrence: None)
  Receive Date: 20140815
  Receipt Date: 20140815
  Transmission Date: 20150326
  Serious: Yes (Other)
  Sender: FDA-Public Use
  Company Number: ADR-2013-01669

PATIENT
  Sex: Female

DRUGS (5)
  1. BACLOFEN. [Suspect]
     Active Substance: BACLOFEN
     Indication: PAIN
  2. MORPHINE [Concomitant]
     Active Substance: MORPHINE
  3. MORPHINE [Suspect]
     Active Substance: MORPHINE
  4. BUPIVACAINE [Concomitant]
     Active Substance: BUPIVACAINE
  5. COMPOUNDED BACLOFEN [Concomitant]
     Active Substance: BACLOFEN

REACTIONS (5)
  - Nausea [None]
  - Constipation [None]
  - Drug withdrawal syndrome [None]
  - Pain [None]
  - Chills [None]
